FAERS Safety Report 7158330-9 (Version None)
Quarter: 2010Q4

REPORT INFORMATION
  Report Type: 
  Country: None (occurrence: None)
  Receive Date: 20101214
  Receipt Date: 20100723
  Transmission Date: 20110411
  Serious: No
  Sender: FDA-Public Use
  Company Number: US-PFIZER INC-2010078996

PATIENT
  Sex: Male

DRUGS (1)
  1. ARTHROTEC [Suspect]
     Dosage: UNK
     Dates: end: 20100101

REACTIONS (1)
  - ABDOMINAL PAIN UPPER [None]
